FAERS Safety Report 7348424-7 (Version None)
Quarter: 2011Q1

REPORT INFORMATION
  Report Type: 
  Country: None (occurrence: None)
  Receive Date: 20110311
  Receipt Date: 20110303
  Transmission Date: 20110831
  Serious: Yes (Death, Hospitalization, Other)
  Sender: FDA-Public Use
  Company Number: MX-GILEAD-2011-0036778

PATIENT
  Sex: Female

DRUGS (7)
  1. TRUVADA [Suspect]
     Indication: HIV INFECTION
     Route: 048
     Dates: start: 20110124, end: 20110217
  2. BACTRIM [Concomitant]
     Indication: PROPHYLAXIS
     Dates: start: 20110124, end: 20110217
  3. CAPTOPRIL [Concomitant]
     Indication: HYPERTENSION
     Dates: end: 20100217
  4. KALETRA [Suspect]
     Indication: HIV INFECTION
     Route: 048
     Dates: start: 20110124, end: 20110217
  5. FERROUS SULFATE TAB [Concomitant]
     Indication: ANAEMIA
     Dates: end: 20110217
  6. PREDNISONE [Concomitant]
     Dates: start: 20110222, end: 20110301
  7. BACTRIM [Concomitant]
     Dates: start: 20110222, end: 20110301

REACTIONS (7)
  - METABOLIC ACIDOSIS [None]
  - RENAL FAILURE ACUTE [None]
  - PANCREATITIS [None]
  - THROMBOCYTOPENIA [None]
  - ANAEMIA [None]
  - HEPATOSPLENOMEGALY [None]
  - PNEUMONIA PRIMARY ATYPICAL [None]
